FAERS Safety Report 8783253 (Version 2)
Quarter: 2012Q4

REPORT INFORMATION
  Report Type: 
  Country: BR (occurrence: BR)
  Receive Date: 20120913
  Receipt Date: 20121030
  Transmission Date: 20130627
  Serious: Yes (Death, Hospitalization, Other)
  Sender: FDA-Public Use
  Company Number: BR-SANOFI-AVENTIS-2012SA064029

PATIENT
  Age: 54 Year
  Sex: Male
  Weight: 40 kg

DRUGS (4)
  1. LANTUS [Suspect]
     Indication: TYPE 2 DIABETES MELLITUS
     Route: 058
     Dates: start: 2006
  2. AUTOPEN 24 [Suspect]
     Indication: DEVICE THERAPY
     Dates: start: 2006
  3. PANCREATIN [Concomitant]
     Indication: PANCREATECTOMY
     Route: 048
     Dates: start: 2002
  4. NOVORAPID [Concomitant]
     Indication: TYPE 2 DIABETES MELLITUS
     Dosage: Dose: according to glycemia
     Route: 058
     Dates: start: 2002

REACTIONS (7)
  - Multi-organ failure [Fatal]
  - Abasia [Unknown]
  - Hypoglycaemia [Unknown]
  - Weight decreased [Unknown]
  - Pain in extremity [Unknown]
  - Blister [Unknown]
  - Oedema peripheral [Unknown]
